FAERS Safety Report 13454842 (Version 2)
Quarter: 2017Q2

REPORT INFORMATION
  Report Type: Report from Study
  Country: US (occurrence: US)
  Receive Date: 20170418
  Receipt Date: 20170421
  Transmission Date: 20170830
  Serious: Yes (Other)
  Sender: FDA-Public Use
  Company Number: US-JNJFOC-20160601149

PATIENT
  Age: 69 Year
  Sex: Male

DRUGS (15)
  1. METOPROLOL TARTRATE. [Concomitant]
     Active Substance: METOPROLOL TARTRATE
  2. PROAIR HFA [Concomitant]
     Active Substance: ALBUTEROL SULFATE
     Dosage: 2 PUFFS IN 6 HOURS AS NEEDED
  3. IMBRUVICA [Suspect]
     Active Substance: IBRUTINIB
     Indication: CHRONIC LYMPHOCYTIC LEUKAEMIA
     Route: 048
     Dates: start: 20160713
  4. IMBRUVICA [Suspect]
     Active Substance: IBRUTINIB
     Indication: CHRONIC LYMPHOCYTIC LEUKAEMIA
     Route: 048
     Dates: start: 201704
  5. IMBRUVICA [Suspect]
     Active Substance: IBRUTINIB
     Indication: CHRONIC LYMPHOCYTIC LEUKAEMIA
     Route: 048
     Dates: start: 201704
  6. PREDNISONE. [Concomitant]
     Active Substance: PREDNISONE
  7. VITAMIN B12 [Concomitant]
     Active Substance: CYANOCOBALAMIN
  8. SYNTHROID [Concomitant]
     Active Substance: LEVOTHYROXINE SODIUM
  9. ACYCLOVIR. [Concomitant]
     Active Substance: ACYCLOVIR
  10. FENOFIBRATE. [Concomitant]
     Active Substance: FENOFIBRATE
  11. VITAMIN D [Concomitant]
     Active Substance: CHOLECALCIFEROL
  12. IMBRUVICA [Suspect]
     Active Substance: IBRUTINIB
     Indication: CHRONIC LYMPHOCYTIC LEUKAEMIA
     Route: 048
     Dates: start: 20150511
  13. BACTRIM [Concomitant]
     Active Substance: SULFAMETHOXAZOLE\TRIMETHOPRIM
     Dosage: 1 UNIT 3 X PER WEEK
  14. IMBRUVICA [Suspect]
     Active Substance: IBRUTINIB
     Indication: CHRONIC LYMPHOCYTIC LEUKAEMIA
     Route: 048
     Dates: start: 20160511, end: 2016
  15. LEVOTHYROXINE SODIUM. [Concomitant]
     Active Substance: LEVOTHYROXINE SODIUM

REACTIONS (11)
  - Blood count abnormal [Unknown]
  - Platelet count abnormal [Not Recovered/Not Resolved]
  - Diarrhoea [Not Recovered/Not Resolved]
  - Fatigue [Not Recovered/Not Resolved]
  - Atrial fibrillation [Recovered/Resolved]
  - Scrotal haematocoele [Recovering/Resolving]
  - Off label use [Not Recovered/Not Resolved]
  - Platelet count decreased [Recovering/Resolving]
  - Incorrect dose administered [Not Recovered/Not Resolved]
  - Dyspnoea [Unknown]
  - Contusion [Recovering/Resolving]

NARRATIVE: CASE EVENT DATE: 2016
